FAERS Safety Report 9713023 (Version 1)
Quarter: 2013Q4

REPORT INFORMATION
  Report Type: Spontaneous
  Country: IT (occurrence: IT)
  Receive Date: 20131126
  Receipt Date: 20131126
  Transmission Date: 20140711
  Serious: Yes (Hospitalization)
  Sender: FDA-Public Use
  Company Number: IT-BAYER-2013-141345

PATIENT
  Age: 59 Year
  Sex: Female
  Weight: 58.96 kg

DRUGS (1)
  1. KETOPROFEN (TOPICAL) [Suspect]
     Indication: PAIN IN EXTREMITY
     Dosage: 100 MG, ONCE
     Route: 061
     Dates: start: 20131028, end: 20131031

REACTIONS (2)
  - Erythema multiforme [Recovering/Resolving]
  - Hyperpyrexia [Recovering/Resolving]
